FAERS Safety Report 7062083-2 (Version None)
Quarter: 2010Q4

REPORT INFORMATION
  Report Type: 
  Country: None (occurrence: None)
  Receive Date: 20101026
  Receipt Date: 20101012
  Transmission Date: 20110411
  Serious: Yes (Other)
  Sender: FDA-Public Use
  Company Number: PHHY2010JP60515

PATIENT
  Sex: Female
  Weight: 48 kg

DRUGS (4)
  1. DIOVAN [Suspect]
     Indication: HYPERTENSION
     Dosage: 40 MG, QD
     Route: 048
     Dates: start: 20100817, end: 20100826
  2. ARICEPT [Concomitant]
     Indication: DEMENTIA ALZHEIMER'S TYPE
     Dosage: UNK
     Dates: start: 20070501
  3. 8-HOUR BAYER [Concomitant]
     Indication: CEREBRAL INFARCTION
     Dosage: 1DF
     Dates: start: 20070501
  4. FUROSEMIDE [Concomitant]
     Indication: OEDEMA
     Dosage: 01 DF
     Dates: start: 20100108

REACTIONS (9)
  - ABASIA [None]
  - ASPARTATE AMINOTRANSFERASE INCREASED [None]
  - BLOOD CREATINE PHOSPHOKINASE INCREASED [None]
  - BLOOD GLUCOSE INCREASED [None]
  - CEREBRAL ATROPHY [None]
  - GAIT DISTURBANCE [None]
  - MYALGIA [None]
  - RHABDOMYOLYSIS [None]
  - WHITE BLOOD CELL COUNT INCREASED [None]
